FAERS Safety Report 8030214-3 (Version None)
Quarter: 2011Q4

REPORT INFORMATION
  Report Type: 
  Country: None (occurrence: None)
  Receive Date: 20111130
  Receipt Date: 20110531
  Transmission Date: 20120403
  Serious: Yes (Hospitalization, Other)
  Sender: FDA-Public Use
  Company Number: US201006005977

PATIENT
  Age: 55 Year
  Sex: Female
  Weight: 111.1 kg

DRUGS (19)
  1. HUMALOG (NISULIN LISPRO) [Concomitant]
  2. VOLTAREN [Concomitant]
  3. ADVAIR HFA [Concomitant]
  4. VYTORIN [Concomitant]
  5. NAFTIN (NAFTIFINE HYDROCHLORIDE) [Concomitant]
  6. CHROMAGEN (ASCORBIC ACID, CYANOCOBALAMIN, FERROUS FUMARATE, STOMACH DE [Concomitant]
  7. LOTENSIN [Concomitant]
  8. NAPROXEN [Concomitant]
  9. SYNTHROID [Concomitant]
  10. SINGULAIR [Concomitant]
  11. EXENATIDE UNK STRENGTH PEN, DISPOSABLE DEVICE (EXENATIDE PEN (UNKNOWN [Concomitant]
  12. GLUCOPHAGE [Concomitant]
  13. INDAPAMIDE [Concomitant]
  14. ASPIRIN [Concomitant]
  15. ALBUTEROL SULFATE [Concomitant]
  16. BYETTA [Suspect]
     Dosage: 5 UG, BID
     Dates: start: 20051218, end: 20080401
  17. NEXIUM [Concomitant]
  18. NORVASC [Concomitant]
  19. HYZAAR [Concomitant]

REACTIONS (2)
  - OFF LABEL USE [None]
  - PANCREATITIS ACUTE [None]
